FAERS Safety Report 5366731-4 (Version None)
Quarter: 2007Q2

REPORT INFORMATION
  Report Type: 
  Country: None (occurrence: None)
  Receive Date: 20070622
  Receipt Date: 20060817
  Transmission Date: 20071010
  Serious: No
  Sender: FDA-Public Use
  Company Number: US-ASTRAZENECA-2006UW16365

PATIENT
  Sex: Female

DRUGS (6)
  1. RHINOCORT [Suspect]
     Route: 045
  2. CLARINEX [Suspect]
  3. SINGULAIR [Suspect]
  4. FLOVENT [Suspect]
  5. ZYRTEC [Concomitant]
  6. ALLEGRA [Concomitant]

REACTIONS (2)
  - ABDOMINAL DISTENSION [None]
  - SWELLING [None]
